FAERS Safety Report 20131516 (Version 1)
Quarter: 2021Q4

REPORT INFORMATION
  Report Type: Spontaneous
  Country: BR (occurrence: BR)
  Receive Date: 20211130
  Receipt Date: 20211130
  Transmission Date: 20220303
  Serious: Yes (Hospitalization)
  Sender: FDA-Public Use
  Company Number: BR-ALLERGAN-2140039US

PATIENT
  Sex: Female

DRUGS (1)
  1. BOTOX [Suspect]
     Active Substance: ONABOTULINUMTOXINA
     Indication: Bruxism
     Dosage: 62 UNITS, SINGLE
     Dates: start: 20211115, end: 20211115

REACTIONS (7)
  - Infection [Recovered/Resolved]
  - Off label use [Unknown]
  - Injection site urticaria [Recovered/Resolved]
  - Injection site oedema [Recovered/Resolved]
  - Application site erythema [Recovered/Resolved]
  - Hypersensitivity [Recovered/Resolved]
  - Pruritus [Unknown]

NARRATIVE: CASE EVENT DATE: 20211116
